FAERS Safety Report 9538329 (Version 2)
Quarter: 2013Q3

REPORT INFORMATION
  Report Type: Spontaneous
  Country: CA (occurrence: CA)
  Receive Date: 20130920
  Receipt Date: 20130930
  Transmission Date: 20140515
  Serious: Yes (Life-Threatening)
  Sender: FDA-Public Use
  Company Number: CA-CELGENEUS-028-21880-13092325

PATIENT
  Age: 66 Year
  Sex: Female
  Weight: 98 kg

DRUGS (10)
  1. REVLIMID [Suspect]
     Indication: PLASMA CELL MYELOMA
     Route: 048
     Dates: start: 2008
  2. REVLIMID [Suspect]
     Indication: PANCYTOPENIA
     Dosage: 10 MILLIGRAM
     Route: 048
     Dates: start: 201006, end: 201307
  3. DEXAMETHASONE [Concomitant]
     Indication: PLASMA CELL MYELOMA
     Dosage: 20 MILLIGRAM
     Route: 065
     Dates: start: 201006, end: 201307
  4. LASIX [Concomitant]
     Indication: OEDEMA
     Dosage: 20 MILLIGRAM
     Route: 065
  5. ASA [Concomitant]
     Indication: THROMBOSIS PROPHYLAXIS
     Dosage: 81 MILLIGRAM
     Route: 065
  6. DILAUDID [Concomitant]
     Indication: PAIN
     Route: 065
  7. MELPHALAN [Concomitant]
     Indication: PLASMA CELL MYELOMA
     Route: 065
     Dates: start: 200804, end: 200810
  8. PREDNISONE [Concomitant]
     Indication: PLASMA CELL MYELOMA
     Route: 065
     Dates: start: 200804, end: 200810
  9. VELCADE [Concomitant]
     Indication: PLASMA CELL MYELOMA
     Route: 065
     Dates: start: 200906, end: 200911
  10. BLOOD TRANSFUSION [Concomitant]
     Indication: PRODUCT USED FOR UNKNOWN INDICATION
     Route: 065

REACTIONS (1)
  - Myelodysplastic syndrome [Not Recovered/Not Resolved]
